FAERS Safety Report 4886805-1 (Version None)
Quarter: 2006Q1

REPORT INFORMATION
  Report Type: 
  Country: None (occurrence: None)
  Receive Date: 20060119
  Receipt Date: 20060119
  Transmission Date: 20060701
  Serious: Yes (Life-Threatening, Hospitalization)
  Sender: FDA-Public Use
  Company Number: None

PATIENT
  Sex: Female
  Weight: 69.8539 kg

DRUGS (1)
  1. LEVLEN 28 [Suspect]
     Indication: MENSTRUATION IRREGULAR
     Dosage: 1 PILL   DAILY  PO
     Route: 048
     Dates: start: 19940424, end: 20050801

REACTIONS (2)
  - ADENOMA BENIGN [None]
  - HEPATIC ADENOMA [None]
